FAERS Safety Report 10787677 (Version 2)
Quarter: 2015Q1

REPORT INFORMATION
  Report Type: Spontaneous
  Country: US (occurrence: None)
  Receive Date: 20150210
  Receipt Date: 20150318
  Transmission Date: 20150721
  Serious: Yes (Death)
  Sender: FDA-Public Use
  Company Number: US-001667

PATIENT
  Age: 66 Year
  Sex: Male

DRUGS (2)
  1. SOLUTIONS FOR PARENTERAL NUTRITION [Suspect]
     Active Substance: AMINO ACIDS\DEXTROSE\ELECTROLYTES NOS
  2. GATTEX [Suspect]
     Active Substance: TEDUGLUTIDE\WATER
     Indication: SHORT-BOWEL SYNDROME
     Dosage: DF
     Route: 058
     Dates: start: 20140204

REACTIONS (3)
  - Cardiac arrest [None]
  - Death [None]
  - Arrhythmia [None]

NARRATIVE: CASE EVENT DATE: 20150128
